FAERS Safety Report 23623064 (Version 1)
Quarter: 2024Q1

REPORT INFORMATION
  Report Type: Spontaneous
  Country: US (occurrence: US)
  Receive Date: 20240312
  Receipt Date: 20240312
  Transmission Date: 20240409
  Serious: No
  Sender: FDA-Public Use
  Company Number: US-002147023-NVSC2024US051987

PATIENT

DRUGS (1)
  1. LEQVIO [Suspect]
     Active Substance: INCLISIRAN SODIUM
     Indication: Blood cholesterol
     Dosage: 246 MG, OTHER (INITIAL DOSE, 90 DAYS AND 6 MONTHS)
     Route: 058

REACTIONS (1)
  - Low density lipoprotein increased [Recovered/Resolved]
